FAERS Safety Report 5176256-7 (Version None)
Quarter: 2006Q4

REPORT INFORMATION
  Report Type: 
  Country: None (occurrence: None)
  Receive Date: 20061129
  Receipt Date: 20061115
  Transmission Date: 20070319
  Serious: Yes (Disabling)
  Sender: FDA-Public Use
  Company Number: WSDF_00582

PATIENT
  Age: 68 Year
  Sex: Male
  Weight: 126.1 kg

DRUGS (7)
  1. WINRHO SDF [Suspect]
     Indication: IDIOPATHIC THROMBOCYTOPENIC PURPURA
     Dosage: 6000 MCG ONCE IV
     Route: 042
     Dates: start: 20061004, end: 20061004
  2. PREDNISONE TAB [Concomitant]
  3. IMURAN [Concomitant]
  4. LOPRESSOR [Concomitant]
  5. BENADRYL [Concomitant]
  6. DECADRON [Concomitant]
  7. LORTAB [Concomitant]

REACTIONS (6)
  - BLOOD PRESSURE INCREASED [None]
  - DEEP VEIN THROMBOSIS [None]
  - PHLEBITIS [None]
  - PLATELET COUNT DECREASED [None]
  - PULMONARY EMBOLISM [None]
  - VARICOSE VEIN [None]
